FAERS Safety Report 18381630 (Version 1)
Quarter: 2020Q4

REPORT INFORMATION
  Report Type: Spontaneous
  Country: US (occurrence: US)
  Receive Date: 20201014
  Receipt Date: 20201014
  Transmission Date: 20210114
  Serious: No
  Sender: FDA-Public Use
  Company Number: US-PFIZER INC-2020395534

PATIENT
  Age: 49 Year
  Sex: Female

DRUGS (2)
  1. EUCRISA [Suspect]
     Active Substance: CRISABOROLE
     Indication: RASH
  2. EUCRISA [Suspect]
     Active Substance: CRISABOROLE
     Indication: DERMATITIS ATOPIC
     Dosage: UNK, 2X/DAY [APPLY TO AFFECTED AREAS BID (TWICE A DAY) PRN RASH]

REACTIONS (3)
  - Milk allergy [Unknown]
  - Food allergy [Unknown]
  - Condition aggravated [Unknown]
